FAERS Safety Report 9464904 (Version 4)
Quarter: 2014Q1

REPORT INFORMATION
  Report Type: Spontaneous
  Country: CN (occurrence: CN)
  Receive Date: 20130819
  Receipt Date: 20140103
  Transmission Date: 20141002
  Serious: Yes (Life-Threatening)
  Sender: FDA-Public Use
  Company Number: CN-BRISTOL-MYERS SQUIBB COMPANY-19165661

PATIENT
  Age: 53 Year
  Sex: Female
  Weight: 56 kg

DRUGS (2)
  1. PARAPLATIN [Suspect]
     Dosage: 1DF=550MS?RESTARTED 30JUL2013
     Route: 041
     Dates: start: 20130730
  2. TAXOL [Concomitant]
     Route: 041
     Dates: start: 20130730, end: 20130730

REACTIONS (1)
  - Drug hypersensitivity [Recovered/Resolved]
